FAERS Safety Report 7409600-8 (Version None)
Quarter: 2011Q1

REPORT INFORMATION
  Report Type: 
  Country: None (occurrence: None)
  Receive Date: 20110301
  Receipt Date: 20100608
  Transmission Date: 20110831
  Serious: Yes (Other)
  Sender: FDA-Public Use
  Company Number: RB-11582-2010

PATIENT
  Sex: Male

DRUGS (1)
  1. SUBOXONE [Suspect]
     Indication: SUBSTANCE ABUSE

REACTIONS (2)
  - THERAPY NAIVE [None]
  - SUBSTANCE ABUSE [None]
